FAERS Safety Report 14432432 (Version 1)
Quarter: 2018Q1

REPORT INFORMATION
  Report Type: Report from Study
  Country: CA (occurrence: CA)
  Receive Date: 20180124
  Receipt Date: 20180124
  Transmission Date: 20180509
  Serious: Yes (Other)
  Sender: FDA-Public Use
  Company Number: PHHY2013CA014735

PATIENT
  Sex: Female

DRUGS (3)
  1. GLEEVEC [Suspect]
     Active Substance: IMATINIB MESYLATE
     Indication: CHRONIC MYELOID LEUKAEMIA
     Dosage: 300 MG, QD
     Route: 048
     Dates: start: 20080101, end: 201712
  2. GLEEVEC [Suspect]
     Active Substance: IMATINIB MESYLATE
     Dosage: 300 MG, QD
     Route: 048
     Dates: start: 20171221
  3. DIAZEPAM. [Concomitant]
     Active Substance: DIAZEPAM
     Indication: PRODUCT USED FOR UNKNOWN INDICATION
     Dosage: UNK
     Route: 065

REACTIONS (35)
  - Dizziness [Unknown]
  - Blood pressure increased [Unknown]
  - Fatigue [Unknown]
  - Teeth brittle [Unknown]
  - Dyskinesia [Unknown]
  - Muscle spasms [Recovering/Resolving]
  - Hypoaesthesia [Not Recovered/Not Resolved]
  - Dyspnoea [Recovered/Resolved]
  - Tibia fracture [Unknown]
  - Gait inability [Unknown]
  - Sputum discoloured [Unknown]
  - Peripheral swelling [Unknown]
  - Arthralgia [Unknown]
  - Nasopharyngitis [Unknown]
  - Limb injury [Unknown]
  - Tooth loss [Unknown]
  - Nerve compression [Unknown]
  - Nerve injury [Unknown]
  - Pain [Unknown]
  - Joint swelling [Unknown]
  - Joint dislocation [Unknown]
  - Arthropathy [Recovering/Resolving]
  - Feeling abnormal [Unknown]
  - Lymphadenopathy [Unknown]
  - Paraesthesia [Not Recovered/Not Resolved]
  - Back pain [Not Recovered/Not Resolved]
  - White blood cell count increased [Unknown]
  - Herpes zoster [Recovered/Resolved]
  - Pyrexia [Unknown]
  - Skin lesion [Recovered/Resolved]
  - Urine odour abnormal [Unknown]
  - Blood cholesterol increased [Unknown]
  - Osteoarthritis [Unknown]
  - Productive cough [Unknown]
  - Arthritis [Unknown]
